FAERS Safety Report 20940215 (Version 1)
Quarter: 2022Q2

REPORT INFORMATION
  Report Type: Spontaneous
  Country: IN (occurrence: IN)
  Receive Date: 20220609
  Receipt Date: 20220609
  Transmission Date: 20220721
  Serious: Yes (Death, Other)
  Sender: FDA-Public Use
  Company Number: IN-PFIZER INC-2019236646

PATIENT
  Age: 64 Year
  Sex: Male

DRUGS (8)
  1. SUTENT [Suspect]
     Active Substance: SUNITINIB MALATE
     Indication: Metastatic renal cell carcinoma
     Dosage: 50 MG, CYCLIC (ONCE A DAY FOR 14 DAYS FOLLOWED BY A BREAK OF 7 DAYS)
     Route: 048
     Dates: start: 20190601
  2. SUTENT [Suspect]
     Active Substance: SUNITINIB MALATE
     Dosage: 37.5 MG, CYCLIC (14 DAYS FOLLOWED BY A BREAK OF 7 DAYS)
     Route: 048
  3. SUTENT [Suspect]
     Active Substance: SUNITINIB MALATE
     Dosage: UNK
     Dates: end: 20220128
  4. ZOLPIDEM TARTRATE [Concomitant]
     Active Substance: ZOLPIDEM TARTRATE
     Dosage: 10 MG, 1X/DAY (ONCE IN THE NIGHT FOR A MONTH)
  5. MILK OF MAGNESIA [Concomitant]
     Active Substance: MAGNESIUM HYDROXIDE
     Indication: Constipation
     Dosage: 30 ML, 1X/DAY (ONCE EVERY NIGHT FOR A MONTH)
  6. NEKSIUM [Concomitant]
     Dosage: 40 MG, 2X/DAY (5 DAYS)
  7. CALCIUM\CHOLECALCIFEROL [Concomitant]
     Active Substance: CALCIUM\CHOLECALCIFEROL
     Dosage: UNK
  8. KABIPRO [Concomitant]
     Dosage: 1 SCOOP TWICE A DAY

REACTIONS (10)
  - Death [Fatal]
  - Haemoglobin decreased [Unknown]
  - Asthenia [Unknown]
  - Skin disorder [Unknown]
  - Oral mucosal blistering [Unknown]
  - Weight decreased [Unknown]
  - Blister [Unknown]
  - Vomiting [Unknown]
  - Palmar-plantar erythrodysaesthesia syndrome [Unknown]
  - Decreased appetite [Unknown]
